FAERS Safety Report 16432900 (Version 1)
Quarter: 2019Q2

REPORT INFORMATION
  Report Type: Spontaneous
  Country: US (occurrence: US)
  Receive Date: 20190614
  Receipt Date: 20190614
  Transmission Date: 20190711
  Serious: No
  Sender: FDA-Public Use
  Company Number: US-JNJFOC-20190541703

PATIENT
  Sex: Female
  Weight: 62 kg

DRUGS (3)
  1. CORTISONE [Suspect]
     Active Substance: CORTISONE\HYDROCORTISONE
     Indication: MUSCLE STRAIN
     Route: 030
  2. TRAMADOL HYDROCHLORIDE. [Suspect]
     Active Substance: TRAMADOL HYDROCHLORIDE
     Indication: PROCEDURAL PAIN
     Route: 065
  3. TIZANIDINE. [Suspect]
     Active Substance: TIZANIDINE
     Indication: MUSCLE STRAIN
     Route: 048
     Dates: start: 20190518, end: 20190518

REACTIONS (4)
  - Hypertension [Unknown]
  - Dystonia [Unknown]
  - Heart rate increased [Unknown]
  - Muscle strain [Recovering/Resolving]
